FAERS Safety Report 22049768 (Version 1)
Quarter: 2023Q1

REPORT INFORMATION
  Report Type: Spontaneous
  Country: US (occurrence: None)
  Receive Date: 20230228
  Receipt Date: 20230228
  Transmission Date: 20230417
  Serious: Yes (Hospitalization)
  Sender: FDA-Public Use
  Company Number: None

PATIENT
  Age: 64 Year
  Sex: Male
  Weight: 91.63 kg

DRUGS (26)
  1. TEMOZOLOMIDE [Suspect]
     Active Substance: TEMOZOLOMIDE
     Indication: Brain neoplasm malignant
     Dosage: FREQUENCY : DAILY;?
     Route: 048
  2. TEMOZOLOMIDE [Suspect]
     Active Substance: TEMOZOLOMIDE
     Indication: Brain neoplasm malignant
     Dosage: FREQUENCY : DAILY;?
     Route: 048
  3. ASPIRIN [Concomitant]
  4. BACTRIM DS [Concomitant]
  5. CARVEDILOL [Concomitant]
     Active Substance: CARVEDILOL
  6. CYMBALTA [Concomitant]
  7. EZETIMIBE [Concomitant]
  8. FAMOTIDINE [Concomitant]
  9. FLOMAX [Concomitant]
  10. KEPPRA [Concomitant]
  11. KLOR-CON [Concomitant]
  12. LEVETIRACETAM [Concomitant]
  13. MAXZIDE [Concomitant]
  14. MECLIZINE [Concomitant]
  15. NITROGLYCERIN [Concomitant]
  16. NOVOLOG [Concomitant]
  17. ONDANSETRON [Concomitant]
  18. PANTOPRAZOLE [Concomitant]
  19. PERIDEX [Concomitant]
  20. PROCHLORPERAZINE [Concomitant]
  21. ROSUVASTATIN [Concomitant]
  22. SOMA [Concomitant]
  23. TAMSULOSIN [Concomitant]
  24. TRIAMTERENE-HCTZ [Concomitant]
  25. XANAX [Concomitant]
  26. ZETIA [Concomitant]
     Active Substance: EZETIMIBE

REACTIONS (2)
  - Head injury [None]
  - Incorrect dose administered [None]
